FAERS Safety Report 6396867-0 (Version None)
Quarter: 2009Q4

REPORT INFORMATION
  Report Type: 
  Country: None (occurrence: None)
  Receive Date: 20091012
  Receipt Date: 20090713
  Transmission Date: 20100525
  Serious: No
  Sender: FDA-Public Use
  Company Number: US-ASTRAZENECA-2009UW19667

PATIENT
  Age: 66 Year
  Sex: Female
  Weight: 97.5 kg

DRUGS (5)
  1. SYMBICORT [Suspect]
     Indication: ASTHMA
     Route: 055
     Dates: start: 20090611
  2. ASPIRIN [Concomitant]
  3. LISINOPRIL [Concomitant]
  4. METFORMIN HYDROCHLORIDE [Concomitant]
  5. CRESTOR [Concomitant]

REACTIONS (2)
  - EPISTAXIS [None]
  - HEADACHE [None]
